FAERS Safety Report 5650663-8 (Version None)
Quarter: 2008Q1

REPORT INFORMATION
  Report Type: 
  Country: None (occurrence: None)
  Receive Date: 20080305
  Receipt Date: 20080222
  Transmission Date: 20080703
  Serious: Yes (Hospitalization)
  Sender: FDA-Public Use
  Company Number: PHHO2007US08640

PATIENT
  Age: 67 Year
  Sex: Male
  Weight: 65.5 kg

DRUGS (18)
  1. GLEEVEC [Suspect]
     Indication: NON-SMALL CELL LUNG CANCER
     Dosage: 600MG
     Route: 048
     Dates: start: 20070126, end: 20070222
  2. TAXOTERE [Suspect]
     Indication: NON-SMALL CELL LUNG CANCER
     Dosage: 30MG/M2
     Route: 042
     Dates: start: 20070126, end: 20070209
  3. TIKOSYN [Concomitant]
     Indication: ATRIAL FIBRILLATION
  4. COREG [Concomitant]
     Indication: HYPERLIPIDAEMIA
  5. LISINOPRIL [Concomitant]
     Indication: HYPERTENSION
  6. LASIX [Concomitant]
  7. WARFARIN SODIUM [Concomitant]
  8. OMEGA 3 [Concomitant]
     Indication: MINERAL SUPPLEMENTATION
  9. PREVACID [Concomitant]
     Indication: PROPHYLAXIS
  10. DIGOXIN [Concomitant]
     Indication: ATRIAL FIBRILLATION
  11. AMBIEN [Concomitant]
     Indication: INSOMNIA
  12. DILAUDID [Concomitant]
     Indication: PAIN
  13. DECADRON [Concomitant]
  14. PROMETHAZINE HCL [Concomitant]
     Indication: NAUSEA
  15. REGLAN [Concomitant]
     Indication: NAUSEA
  16. MYCELEX [Concomitant]
  17. ZOFRAN [Concomitant]
     Indication: NAUSEA
  18. COUMADIN [Suspect]

REACTIONS (13)
  - ANAEMIA [None]
  - BLOOD CREATININE INCREASED [None]
  - COAGULOPATHY [None]
  - DECREASED APPETITE [None]
  - DEHYDRATION [None]
  - DIARRHOEA [None]
  - DIZZINESS [None]
  - FATIGUE [None]
  - HYPERGLYCAEMIA [None]
  - INTERNATIONAL NORMALISED RATIO INCREASED [None]
  - LUNG NEOPLASM [None]
  - MALIGNANT NEOPLASM PROGRESSION [None]
  - POLLAKIURIA [None]
